FAERS Safety Report 9022466 (Version 1)
Quarter: 2013Q1

REPORT INFORMATION
  Report Type: Spontaneous
  Country: US (occurrence: US)
  Receive Date: 20130118
  Receipt Date: 20130118
  Transmission Date: 20140127
  Serious: No
  Sender: FDA-Public Use
  Company Number: US-PFIZER INC-2013021152

PATIENT
  Age: 46 Year
  Sex: Female
  Weight: 70.3 kg

DRUGS (6)
  1. NEURONTIN [Suspect]
     Indication: BACK PAIN
     Dosage: UNK
     Dates: start: 2009
  2. NEURONTIN [Suspect]
     Indication: MULTIPLE SCLEROSIS
  3. LYRICA [Suspect]
     Indication: BACK PAIN
     Dosage: 75 MG, 2X/DAY
     Route: 048
  4. LYRICA [Suspect]
     Indication: MULTIPLE SCLEROSIS
  5. SOMA [Concomitant]
     Indication: BACK PAIN
     Dosage: UNK
  6. SOMA [Concomitant]
     Indication: MULTIPLE SCLEROSIS

REACTIONS (5)
  - Off label use [Unknown]
  - Malaise [Unknown]
  - Nausea [Unknown]
  - Dizziness [Unknown]
  - Increased appetite [Unknown]
